FAERS Safety Report 4319805-0 (Version None)
Quarter: 2004Q1

REPORT INFORMATION
  Report Type: 
  Country: None (occurrence: None)
  Receive Date: 20040316
  Receipt Date: 20040303
  Transmission Date: 20041129
  Serious: Yes (Life-Threatening, Hospitalization, Other)
  Sender: FDA-Public Use
  Company Number: USA040260302

PATIENT
  Age: 57 Year
  Sex: Female

DRUGS (3)
  1. FORTEO [Suspect]
     Indication: OSTEOPOROSIS
     Dosage: 20 UG/1 DAY
     Dates: start: 20031001
  2. COUMADIN [Concomitant]
  3. PREDNISONE [Concomitant]

REACTIONS (6)
  - CARDIAC DISORDER [None]
  - INJECTION SITE BURNING [None]
  - INJECTION SITE STINGING [None]
  - LOSS OF CONSCIOUSNESS [None]
  - LUNG DISORDER [None]
  - MULTI-ORGAN FAILURE [None]
